FAERS Safety Report 12335648 (Version 1)
Quarter: 2016Q2

REPORT INFORMATION
  Report Type: Spontaneous
  Country: US (occurrence: US)
  Receive Date: 20160505
  Receipt Date: 20160505
  Transmission Date: 20160815
  Serious: Yes (Hospitalization, Other)
  Sender: FDA-Public Use
  Company Number: US-AMGEN-USASP2016054524

PATIENT
  Age: 68 Year
  Sex: Female

DRUGS (3)
  1. AFATINIB [Concomitant]
     Active Substance: AFATINIB
     Indication: NON-SMALL CELL LUNG CANCER
     Dosage: 40 MG, DAILY
  2. CETUXIMAB [Concomitant]
     Active Substance: CETUXIMAB
     Indication: NON-SMALL CELL LUNG CANCER
     Dosage: 400 MG/M2, UNK
  3. PANITUMUMAB [Suspect]
     Active Substance: PANITUMUMAB
     Indication: NON-SMALL CELL LUNG CANCER
     Dosage: 6 MG/KG, UNK
     Route: 065

REACTIONS (7)
  - Metastases to abdominal cavity [Unknown]
  - Hospice care [Unknown]
  - Off label use [Unknown]
  - Diarrhoea [Unknown]
  - Intestinal ischaemia [Unknown]
  - Metastases to meninges [Unknown]
  - Seizure [Unknown]
